FAERS Safety Report 9188863 (Version 2)
Quarter: 2013Q1

REPORT INFORMATION
  Report Type: Report from Study
  Country: US (occurrence: US)
  Receive Date: 20130326
  Receipt Date: 20130327
  Transmission Date: 20140127
  Serious: Yes (Hospitalization)
  Sender: FDA-Public Use
  Company Number: US-BAXTER-2013BAX010005

PATIENT
  Sex: Female
  Weight: 70.45 kg

DRUGS (16)
  1. GAMMAGARD LIQUID [Suspect]
     Indication: DERMATOMYOSITIS
     Route: 042
     Dates: start: 2007, end: 201301
  2. GAMMAGARD LIQUID [Suspect]
     Indication: OFF LABEL USE
  3. EXFORGE [Suspect]
     Indication: HYPERTENSION
     Route: 048
     Dates: end: 201209
  4. HYDRALAZINE [Concomitant]
     Indication: HYPERTENSION
     Route: 048
  5. LOPRESSOR [Concomitant]
     Indication: HYPERTENSION
     Route: 048
  6. PROCARDIA [Concomitant]
     Indication: HYPERTENSION
     Route: 048
  7. PREDNISONE [Concomitant]
     Indication: DERMATOMYOSITIS
     Route: 048
     Dates: start: 2006
  8. LEVOTHYROXINE [Concomitant]
     Indication: PRODUCT USED FOR UNKNOWN INDICATION
     Route: 048
  9. PAXIL [Concomitant]
     Indication: PRODUCT USED FOR UNKNOWN INDICATION
     Route: 048
  10. ATIVAN [Concomitant]
     Indication: PRODUCT USED FOR UNKNOWN INDICATION
     Route: 048
  11. AMBIEN [Concomitant]
     Indication: PRODUCT USED FOR UNKNOWN INDICATION
     Route: 048
  12. ASPIRIN [Concomitant]
     Indication: PRODUCT USED FOR UNKNOWN INDICATION
     Route: 048
  13. ALLEGRA [Concomitant]
     Indication: PRODUCT USED FOR UNKNOWN INDICATION
     Route: 048
  14. VITAMIN D [Concomitant]
     Indication: PRODUCT USED FOR UNKNOWN INDICATION
     Route: 048
  15. CALCIUM [Concomitant]
     Indication: PRODUCT USED FOR UNKNOWN INDICATION
     Route: 048
  16. SUPER B COMPLEX [Concomitant]
     Indication: PRODUCT USED FOR UNKNOWN INDICATION
     Route: 048

REACTIONS (1)
  - Nephrolithiasis [Recovered/Resolved]
